FAERS Safety Report 6927639-3 (Version None)
Quarter: 2010Q3

REPORT INFORMATION
  Report Type: 
  Country: None (occurrence: None)
  Receive Date: 20100817
  Receipt Date: 20100804
  Transmission Date: 20110219
  Serious: Yes (Hospitalization, Other)
  Sender: FDA-Public Use
  Company Number: PHHY2009JP53008

PATIENT
  Age: 46 Year
  Sex: Female

DRUGS (8)
  1. VOLTAREN [Suspect]
     Indication: PYREXIA
     Dosage: 25 MG DAILY
     Route: 054
     Dates: start: 20090608, end: 20090618
  2. LOXONIN [Concomitant]
     Indication: PYREXIA
     Dosage: 60 MG
     Route: 048
     Dates: start: 20090601, end: 20090613
  3. ACYCLOVIR [Concomitant]
     Dosage: 750 MG
     Route: 042
     Dates: start: 20090614, end: 20090618
  4. VALTREX [Concomitant]
     Indication: MENINGITIS
     Dosage: 1000MG
     Route: 048
     Dates: start: 20090609, end: 20090613
  5. ROCEPHIN [Concomitant]
     Indication: INFECTION PROPHYLAXIS
     Dosage: 2G
     Route: 042
     Dates: start: 20090616, end: 20090618
  6. UNASYN [Concomitant]
     Indication: INFECTION PROPHYLAXIS
     Dosage: 4.5G
     Route: 042
     Dates: start: 20090608, end: 20090611
  7. ZITHROMAC [Concomitant]
     Indication: INFECTION PROPHYLAXIS
     Dosage: 2G
     Route: 048
     Dates: start: 20090608, end: 20090608
  8. CEFOTAX [Concomitant]
     Indication: INFECTION PROPHYLAXIS
     Dosage: 1.5G
     Route: 042
     Dates: start: 20090612, end: 20090615

REACTIONS (8)
  - ANTIPHOSPHOLIPID ANTIBODIES POSITIVE [None]
  - ANTIPHOSPHOLIPID SYNDROME [None]
  - HEADACHE [None]
  - INTERLEUKIN LEVEL INCREASED [None]
  - LYMPHOCYTE COUNT DECREASED [None]
  - MENINGITIS ASEPTIC [None]
  - NEUROPSYCHIATRIC LUPUS [None]
  - NEUROSIS [None]
